FAERS Safety Report 9301263 (Version 2)
Quarter: 2013Q3

REPORT INFORMATION
  Report Type: Spontaneous
  Country: US (occurrence: US)
  Receive Date: 20130521
  Receipt Date: 20130704
  Transmission Date: 20140515
  Serious: No
  Sender: FDA-Public Use
  Company Number: US-PFIZER INC-2013154482

PATIENT
  Age: 85 Year
  Sex: Female
  Weight: 80.27 kg

DRUGS (2)
  1. GABAPENTIN [Suspect]
     Dosage: 100 MG, 2X/DAY
     Dates: start: 201305, end: 20130516
  2. MICARDIS [Concomitant]
     Indication: HYPERTENSION
     Dosage: 12.5 MG, 1X/DAY

REACTIONS (3)
  - Intentional drug misuse [Unknown]
  - Vision blurred [Unknown]
  - Somnolence [Unknown]
